FAERS Safety Report 12379372 (Version 3)
Quarter: 2016Q3

REPORT INFORMATION
  Report Type: Spontaneous
  Country: US (occurrence: US)
  Receive Date: 20160517
  Receipt Date: 20160901
  Transmission Date: 20161109
  Serious: No
  Sender: FDA-Public Use
  Company Number: US-RELYPSA-RLY2016000432

PATIENT
  Age: 72 Year
  Sex: Female

DRUGS (31)
  1. ABILIFY [Concomitant]
     Active Substance: ARIPIPRAZOLE
  2. BENADRYL ALLERGY/COLD [Concomitant]
  3. FENOFIBRATE. [Concomitant]
     Active Substance: FENOFIBRATE
  4. LANSOPRAZOLE. [Concomitant]
     Active Substance: LANSOPRAZOLE
  5. LIOTHYRONINE SODIUM. [Concomitant]
     Active Substance: LIOTHYRONINE SODIUM
  6. REPAGLINIDE. [Concomitant]
     Active Substance: REPAGLINIDE
  7. ASTAXANTHIN [Concomitant]
  8. FISH OIL [Concomitant]
     Active Substance: FISH OIL
  9. IRON [Concomitant]
     Active Substance: IRON
  10. VELTASSA [Suspect]
     Active Substance: PATIROMER
     Indication: HYPERKALAEMIA
     Dosage: 8.4 G, QD
     Route: 048
     Dates: start: 20160405
  11. ASPIRIN 81 [Concomitant]
     Active Substance: ASPIRIN
  12. COREG [Concomitant]
     Active Substance: CARVEDILOL
  13. HYDRALAZINE HCL [Concomitant]
     Active Substance: HYDRALAZINE HYDROCHLORIDE
  14. METOLAZONE. [Concomitant]
     Active Substance: METOLAZONE
  15. MAGNESIUM [Concomitant]
     Active Substance: MAGNESIUM
  16. VITAMIN B12 [Concomitant]
     Active Substance: CYANOCOBALAMIN
  17. ATORVASTATIN CALCIUM. [Concomitant]
     Active Substance: ATORVASTATIN CALCIUM
  18. CYMBALTA [Concomitant]
     Active Substance: DULOXETINE HYDROCHLORIDE
  19. DICLOFENAC SODIUM. [Concomitant]
     Active Substance: DICLOFENAC SODIUM
  20. MIRALAX [Concomitant]
     Active Substance: POLYETHYLENE GLYCOL 3350
  21. RESVERATROL [Concomitant]
     Active Substance: RESVERATROL
  22. COENZYME Q10 [Concomitant]
     Active Substance: UBIDECARENONE
  23. LORAZEPAM. [Concomitant]
     Active Substance: LORAZEPAM
  24. METFORMIN HCL [Concomitant]
     Active Substance: METFORMIN HYDROCHLORIDE
  25. ADDERALL [Concomitant]
     Active Substance: AMPHETAMINE ASPARTATE\AMPHETAMINE SULFATE\DEXTROAMPHETAMINE SACCHARATE\DEXTROAMPHETAMINE SULFATE
  26. MOTILIUM [Concomitant]
     Active Substance: DOMPERIDONE
  27. NIFEDIPINE. [Concomitant]
     Active Substance: NIFEDIPINE
  28. CENTRUM SILVER                     /02363801/ [Concomitant]
     Active Substance: MINERALS\VITAMINS
  29. FUROSEMIDE. [Concomitant]
     Active Substance: FUROSEMIDE
  30. SALONPAS                           /00735901/ [Concomitant]
  31. TYLENOL EXTRA STRENGTH [Concomitant]
     Active Substance: ACETAMINOPHEN

REACTIONS (4)
  - Drug ineffective [Unknown]
  - Constipation [Unknown]
  - Vomiting [Unknown]
  - Nausea [Unknown]

NARRATIVE: CASE EVENT DATE: 201604
